FAERS Safety Report 12637866 (Version 1)
Quarter: 2016Q3

REPORT INFORMATION
  Report Type: Spontaneous
  Country: US (occurrence: US)
  Receive Date: 20160809
  Receipt Date: 20160809
  Transmission Date: 20161109
  Serious: No
  Sender: FDA-Public Use
  Company Number: US-SA-2016SA094845

PATIENT
  Age: 86 Year
  Sex: Female
  Weight: 81.6 kg

DRUGS (11)
  1. LORATADINE. [Concomitant]
     Active Substance: LORATADINE
  2. PAROXETINE. [Concomitant]
     Active Substance: PAROXETINE
  3. LANSOPRAZOLE. [Concomitant]
     Active Substance: LANSOPRAZOLE
  4. VALSARTAN. [Concomitant]
     Active Substance: VALSARTAN
  5. ZETIA [Concomitant]
     Active Substance: EZETIMIBE
  6. ALIROCUMAB PREFILLED PEN [Concomitant]
     Active Substance: ALIROCUMAB
     Dates: start: 20160314, end: 20160510
  7. AMLODIPINE [Concomitant]
     Active Substance: AMLODIPINE BESYLATE
  8. OMEGA 3 [Concomitant]
     Active Substance: OMEGA-3 FATTY ACIDS
  9. TOPROL XL [Concomitant]
     Active Substance: METOPROLOL SUCCINATE
  10. PRALUENT [Suspect]
     Active Substance: ALIROCUMAB
     Indication: BLOOD CHOLESTEROL
     Route: 058
     Dates: start: 20160314, end: 20160510
  11. FENOFIBRATE. [Concomitant]
     Active Substance: FENOFIBRATE

REACTIONS (4)
  - Limb discomfort [Unknown]
  - Limb discomfort [Not Recovered/Not Resolved]
  - Musculoskeletal stiffness [Not Recovered/Not Resolved]
  - Unevaluable event [Unknown]

NARRATIVE: CASE EVENT DATE: 20160404
